FAERS Safety Report 5192448-5 (Version None)
Quarter: 2006Q4

REPORT INFORMATION
  Report Type: 
  Country: None (occurrence: None)
  Receive Date: 20061220
  Receipt Date: 20061211
  Transmission Date: 20070319
  Serious: Yes (Other)
  Sender: FDA-Public Use
  Company Number: 2006152045

PATIENT
  Age: 70 Year
  Sex: Female
  Weight: 49.8957 kg

DRUGS (3)
  1. CELEBREX [Suspect]
     Indication: INJURY
     Dosage: 1 IN 1 D
     Dates: start: 19980101
  2. ESTRADERM [Concomitant]
  3. ASPIRIN [Concomitant]

REACTIONS (3)
  - DRUG INEFFECTIVE [None]
  - HEPATIC LESION [None]
  - INTRACRANIAL HYPOTENSION [None]
